FAERS Safety Report 7835248-7 (Version None)
Quarter: 2011Q4

REPORT INFORMATION
  Report Type: 
  Country: None (occurrence: None)
  Receive Date: 20111024
  Receipt Date: 20111019
  Transmission Date: 20120403
  Serious: Yes (Life-Threatening, Other)
  Sender: FDA-Public Use
  Company Number: US-ASTRAZENECA-2011SE58861

PATIENT
  Age: 60 Year
  Sex: Male
  Weight: 74.8 kg

DRUGS (12)
  1. ASPIRIN [Concomitant]
     Indication: ANTICOAGULANT THERAPY
  2. ISOSORBIDE DINITRATE [Concomitant]
  3. NEXIUM [Suspect]
     Route: 048
  4. AMIODARONE HCL [Concomitant]
  5. LISINOPRIL [Suspect]
     Route: 048
  6. PLAVIX [Concomitant]
  7. FLAXSEED OIL [Concomitant]
  8. METFORMIN HCL [Concomitant]
     Indication: DIABETES MELLITUS
     Dosage: 1000 MG, BID
  9. GABAPENTIN [Concomitant]
  10. DARVEGILOL [Concomitant]
     Indication: BLOOD CHOLESTEROL ABNORMAL
     Dosage: 6.25 MG, BID
  11. FISH OIL [Concomitant]
  12. CEPHALEXIN [Concomitant]

REACTIONS (2)
  - COMA [None]
  - MYOCARDIAL INFARCTION [None]
